FAERS Safety Report 11221281 (Version 1)
Quarter: 2015Q2

REPORT INFORMATION
  Report Type: Report from Study
  Country: US (occurrence: US)
  Receive Date: 20150626
  Receipt Date: 20150626
  Transmission Date: 20150821
  Serious: Yes (Death)
  Sender: FDA-Public Use
  Company Number: US-BIOGENIDEC-2015BI084786

PATIENT
  Age: 68 Year
  Sex: Male

DRUGS (2)
  1. PERIO MED [Concomitant]
     Dates: end: 20150601
  2. AVONEX [Suspect]
     Active Substance: INTERFERON BETA-1A
     Indication: MULTIPLE SCLEROSIS
     Route: 030
     Dates: start: 20130121, end: 20150601

REACTIONS (1)
  - Death [Fatal]

NARRATIVE: CASE EVENT DATE: 20150601
